FAERS Safety Report 12211758 (Version 2)
Quarter: 2016Q2

REPORT INFORMATION
  Report Type: Spontaneous
  Country: US (occurrence: US)
  Receive Date: 20160325
  Receipt Date: 20160427
  Transmission Date: 20160815
  Serious: Yes (Other)
  Sender: FDA-Public Use
  Company Number: US-ELI_LILLY_AND_COMPANY-US201603005960

PATIENT
  Sex: Female

DRUGS (5)
  1. WELLBUTRIN [Concomitant]
     Active Substance: BUPROPION HYDROCHLORIDE
     Dosage: UNK, UNKNOWN
     Route: 065
  2. CYMBALTA [Suspect]
     Active Substance: DULOXETINE HYDROCHLORIDE
     Indication: BIPOLAR DISORDER
     Dosage: 30 MG, QD
     Route: 065
     Dates: start: 2010
  3. CYMBALTA [Suspect]
     Active Substance: DULOXETINE HYDROCHLORIDE
     Indication: ANXIETY
     Dosage: 60 MG, QD
     Route: 065
  4. CYMBALTA [Suspect]
     Active Substance: DULOXETINE HYDROCHLORIDE
     Dosage: UNK, UNKNOWN
     Route: 065
     Dates: end: 20160126
  5. VALIUM [Concomitant]
     Active Substance: DIAZEPAM
     Dosage: UNK, UNKNOWN
     Route: 065

REACTIONS (21)
  - Seizure [Recovered/Resolved]
  - Crying [Recovered/Resolved]
  - Hot flush [Not Recovered/Not Resolved]
  - Vomiting [Recovered/Resolved]
  - Self injurious behaviour [Recovered/Resolved]
  - Fall [Recovered/Resolved]
  - Insomnia [Recovered/Resolved]
  - Drug withdrawal syndrome [Unknown]
  - Fear [Recovered/Resolved]
  - Inappropriate affect [Recovered/Resolved]
  - Feeling abnormal [Recovered/Resolved]
  - Vertigo [Recovered/Resolved]
  - Drug dose omission [Recovered/Resolved]
  - Suicidal ideation [Recovered/Resolved]
  - Aggression [Recovered/Resolved]
  - Migraine [Recovered/Resolved]
  - Delusion [Recovered/Resolved]
  - Feeling cold [Not Recovered/Not Resolved]
  - Hyperhidrosis [Not Recovered/Not Resolved]
  - Limb discomfort [Recovered/Resolved]
  - Mood altered [Not Recovered/Not Resolved]
